FAERS Safety Report 4918462-X (Version None)
Quarter: 2006Q1

REPORT INFORMATION
  Report Type: 
  Country: None (occurrence: None)
  Receive Date: 20060217
  Receipt Date: 20060217
  Transmission Date: 20060701
  Serious: Yes (Disabling)
  Sender: FDA-Public Use
  Company Number: None

PATIENT
  Age: 42 Year
  Sex: Female
  Weight: 54.3 kg

DRUGS (13)
  1. VORICONAZOLE [Suspect]
     Indication: ASPERGILLOSIS
     Dosage: 200MG Q12HRS PO
     Route: 048
     Dates: start: 20050916, end: 20051026
  2. ISONIAZID [Suspect]
     Indication: TUBERCULIN TEST POSITIVE
     Dosage: 300MG DAILY
     Dates: start: 20050922
  3. SIROLIMUS [Concomitant]
  4. M.V.I. [Concomitant]
  5. ASPIRIN [Concomitant]
  6. LEVOFLOXACIN [Concomitant]
  7. PYRIDOXINE HCL [Concomitant]
  8. SERTRALINE [Concomitant]
  9. ATORVASTATIN CALCIUM [Concomitant]
  10. LISINOPRIL [Concomitant]
  11. AZITHROMYCIN [Concomitant]
  12. CLINDAMYCIN HCL [Concomitant]
  13. ATROVENT [Concomitant]

REACTIONS (12)
  - CHEST PAIN [None]
  - COUGH [None]
  - DISTURBANCE IN ATTENTION [None]
  - DRUG INTERACTION [None]
  - DYSPNOEA [None]
  - FEELING ABNORMAL [None]
  - GAIT DISTURBANCE [None]
  - HEADACHE [None]
  - MEMORY IMPAIRMENT [None]
  - NERVOUS SYSTEM DISORDER [None]
  - PNEUMONIA STREPTOCOCCAL [None]
  - PRODUCTIVE COUGH [None]
